FAERS Safety Report 8119566-3 (Version None)
Quarter: 2012Q1

REPORT INFORMATION
  Report Type: 
  Country: None (occurrence: None)
  Receive Date: 20120207
  Receipt Date: 20120202
  Transmission Date: 20120608
  Serious: Yes (Death, Hospitalization)
  Sender: FDA-Public Use
  Company Number: PHHY2012BE007618

PATIENT
  Sex: Female

DRUGS (5)
  1. CARVEDILOL [Concomitant]
     Indication: HYPERTENSION
     Dosage: 12.5 MG, DAILY SINCE SEVERAL YEARS
  2. RASILEZ [Suspect]
     Indication: HYPERTENSION
     Dosage: 300 MG DAILY, STARTED MORE THAN 2 YEARS AGO
     Route: 048
  3. LISINOPRIL [Concomitant]
     Indication: HYPERTENSION
     Dosage: 20 MG, DAILY
  4. ASPIRIN [Concomitant]
     Indication: HYPERTENSION
     Dosage: 80 MG, DAILY SINCE SEVERAL YEARS
  5. AMLODIPINE [Concomitant]
     Indication: HYPERTENSION
     Dosage: 10 MG, DAILY SINCE SEVERAL YEARS

REACTIONS (3)
  - CEREBROVASCULAR ACCIDENT [None]
  - DYSPHAGIA [None]
  - HEMIPLEGIA [None]
